FAERS Safety Report 4644413-1 (Version None)
Quarter: 2005Q2

REPORT INFORMATION
  Report Type: 
  Country: None (occurrence: None)
  Receive Date: 20050331
  Receipt Date: 20041202
  Transmission Date: 20051028
  Serious: No
  Sender: FDA-Public Use
  Company Number: 04P-163-0282686-00

PATIENT
  Age: 58 Year
  Sex: Female
  Weight: 70.7611 kg

DRUGS (5)
  1. HUMIRA [Suspect]
     Indication: RHEUMATOID ARTHRITIS
     Dosage: 40 MG, 1 IN 2 WK, SUBCUTANEOUS
     Route: 058
     Dates: start: 20040601, end: 20041101
  2. VERALEN [Concomitant]
  3. MELOXICAM [Concomitant]
  4. PREDNISONE [Concomitant]
  5. UNSPECIFIED DIURETIC [Concomitant]

REACTIONS (4)
  - ANXIETY [None]
  - BLOOD PRESSURE INCREASED [None]
  - DIZZINESS [None]
  - PARAESTHESIA [None]
